FAERS Safety Report 8269998-8 (Version None)
Quarter: 2012Q2

REPORT INFORMATION
  Report Type: 
  Country: None (occurrence: None)
  Receive Date: 20120410
  Receipt Date: 20120403
  Transmission Date: 20120825
  Serious: Yes (Hospitalization, Other)
  Sender: FDA-Public Use
  Company Number: CA-JNJFOC-20120208588

PATIENT
  Age: 64 Year
  Sex: Female
  Weight: 57 kg

DRUGS (13)
  1. DIMENHYDRINATE [Concomitant]
  2. PROCHLORPERAZINE [Concomitant]
  3. ONDANSETRON [Concomitant]
  4. ACETAMINOPHEN [Concomitant]
  5. XARELTO [Suspect]
     Indication: PRODUCT USED FOR UNKNOWN INDICATION
     Route: 048
     Dates: start: 20110927, end: 20110929
  6. FERROUS GLUCONATE [Concomitant]
  7. SENOKOT [Concomitant]
  8. DOCUSATE SODIUM [Concomitant]
  9. PANTOPRAZOLE [Concomitant]
  10. CELEBREX [Concomitant]
  11. GLYCERIN [Concomitant]
  12. MORPHINE [Concomitant]
  13. OXYCODONE HCL [Concomitant]

REACTIONS (1)
  - PLATELET COUNT DECREASED [None]
